FAERS Safety Report 24217470 (Version 4)
Quarter: 2024Q4

REPORT INFORMATION
  Report Type: Spontaneous
  Country: DK (occurrence: DK)
  Receive Date: 20240816
  Receipt Date: 20241001
  Transmission Date: 20250114
  Serious: Yes (Other)
  Sender: SANOFI AVENTIS
  Company Number: DK-SA-SAC20240627000341

PATIENT
  Age: 47 Year
  Sex: Female

DRUGS (2)
  1. DUPIXENT [Suspect]
     Active Substance: DUPILUMAB
     Indication: Chronic rhinosinusitis with nasal polyps
     Dosage: UNK UNK, QOW
     Route: 058
     Dates: start: 20240424, end: 20240531
  2. DUPIXENT [Suspect]
     Active Substance: DUPILUMAB
     Indication: Asthma

REACTIONS (10)
  - Hypereosinophilic syndrome [Unknown]
  - Pain in jaw [Unknown]
  - Pain [Unknown]
  - Tension headache [Unknown]
  - Condition aggravated [Unknown]
  - Influenza [Unknown]
  - Neck pain [Unknown]
  - Condition aggravated [Unknown]
  - Asthma [Unknown]
  - Arthralgia [Unknown]

NARRATIVE: CASE EVENT DATE: 20240501
